FAERS Safety Report 18572706 (Version 1)
Quarter: 2020Q4

REPORT INFORMATION
  Report Type: Spontaneous
  Country: BG (occurrence: BG)
  Receive Date: 20201203
  Receipt Date: 20201203
  Transmission Date: 20210114
  Serious: Yes (Disabling)
  Sender: FDA-Public Use
  Company Number: BG-009507513-2011BGR015868

PATIENT
  Age: 48 Year
  Sex: Female
  Weight: 75 kg

DRUGS (6)
  1. DIPROPHOS [Suspect]
     Active Substance: BETAMETHASONE DIPROPIONATE\BETAMETHASONE SODIUM PHOSPHATE
     Indication: HICCUPS
     Dosage: SUSPENSION FOR INJECTION, STRENGTH: 7 MG/ML
     Dates: start: 20200622, end: 20200622
  2. ROSWERA [Concomitant]
     Active Substance: ROSUVASTATIN
     Dosage: UNK
  3. NEBIVOLOL. [Concomitant]
     Active Substance: NEBIVOLOL
     Dosage: UNK
  4. DIPROPHOS [Suspect]
     Active Substance: BETAMETHASONE DIPROPIONATE\BETAMETHASONE SODIUM PHOSPHATE
     Indication: ARTHRALGIA
  5. VESTIBO [Concomitant]
     Dosage: UNK
  6. PRENESSA [Concomitant]
     Active Substance: PERINDOPRIL
     Dosage: UNK

REACTIONS (3)
  - Panic attack [Recovering/Resolving]
  - Heart rate increased [Recovering/Resolving]
  - Hypertension [Recovering/Resolving]

NARRATIVE: CASE EVENT DATE: 20200622
